FAERS Safety Report 9008569 (Version 1)
Quarter: 2013Q1

REPORT INFORMATION
  Report Type: Spontaneous
  Country: US (occurrence: US)
  Receive Date: 20130111
  Receipt Date: 20130111
  Transmission Date: 20140127
  Serious: No
  Sender: FDA-Public Use
  Company Number: US-PFIZER INC-2013007880

PATIENT
  Age: 56 Year
  Sex: Female
  Weight: 60.8 kg

DRUGS (18)
  1. GEODON [Suspect]
     Indication: BIPOLAR DISORDER
     Dosage: 80 MG, 1X/DAY
     Dates: end: 201204
  2. GEODON [Suspect]
     Dosage: 60 MG, DAILY
     Route: 048
     Dates: start: 201204, end: 201208
  3. LUNESTA [Suspect]
     Dosage: UNK
  4. CYMBALTA [Concomitant]
     Dosage: UNK
  5. ALBUTEROL [Concomitant]
     Dosage: UNK
  6. ADVAIR [Concomitant]
     Indication: ASTHMA
     Dosage: UNK
  7. JANUVIA [Concomitant]
     Dosage: UNK
  8. LEVOTHYROXINE [Concomitant]
     Dosage: UNK
  9. OMEPRAZOLE [Concomitant]
     Dosage: UNK
  10. ATENOLOL [Concomitant]
     Indication: HYPERTENSION
     Dosage: UNK
  11. KLONOPIN [Concomitant]
     Dosage: UNK
  12. LAMICTAL [Concomitant]
     Dosage: UNK
  13. CRESTOR [Concomitant]
     Dosage: UNK
  14. VALTREX [Concomitant]
     Dosage: UNK
  15. AMITRIPTYLINE [Concomitant]
     Dosage: UNK
  16. LITHIUM [Concomitant]
     Dosage: UNK
  17. PAXIL [Concomitant]
     Dosage: UNK
  18. PRISTIQ [Concomitant]
     Dosage: UNK

REACTIONS (6)
  - Neuropathy peripheral [Not Recovered/Not Resolved]
  - Insomnia [Unknown]
  - Initial insomnia [Not Recovered/Not Resolved]
  - Anxiety [Not Recovered/Not Resolved]
  - Memory impairment [Not Recovered/Not Resolved]
  - Dependence [Unknown]
